FAERS Safety Report 15739389 (Version 7)
Quarter: 2019Q2

REPORT INFORMATION
  Report Type: Report from Study
  Country: US (occurrence: US)
  Receive Date: 20181219
  Receipt Date: 20190612
  Transmission Date: 20190711
  Serious: Yes (Hospitalization)
  Sender: FDA-Public Use
  Company Number: US-MALLINCKRODT-T201803367

PATIENT
  Age: 68 Year
  Sex: Female

DRUGS (7)
  1. REPOSITORY CORTICOTROPIN INJECTION [Suspect]
     Active Substance: CORTICOTROPIN
     Dosage: 40 UNITS/0.5 ML, 2 TIMES PER WEEK, TUESDAY/THURSDAY
     Route: 058
     Dates: start: 2019
  2. PREDNISONE. [Concomitant]
     Active Substance: PREDNISONE
     Indication: PRODUCT USED FOR UNKNOWN INDICATION
     Dosage: UNK
     Route: 065
  3. REPOSITORY CORTICOTROPIN INJECTION [Suspect]
     Active Substance: CORTICOTROPIN
     Indication: SARCOIDOSIS
     Dosage: 40 UNITS/0.5 ML, 2 TIMES PER WEEK
     Route: 058
     Dates: start: 20180710
  4. REPOSITORY CORTICOTROPIN INJECTION [Suspect]
     Active Substance: CORTICOTROPIN
     Dosage: 40 UNITS / 0.5 ML, TWICE WEEKLY
     Route: 058
     Dates: start: 20180713, end: 2019
  5. REPOSITORY CORTICOTROPIN INJECTION [Suspect]
     Active Substance: CORTICOTROPIN
     Dosage: 40 UNITS/0.5 ML, 2 TIMES PER WEEK, TUESDAY/THURSDAY
     Route: 058
     Dates: start: 2019, end: 2019
  6. OXYGEN. [Concomitant]
     Active Substance: OXYGEN
     Indication: DYSPNOEA
     Dosage: UNK, INHALATION
     Route: 050
  7. PREDNISONE. [Concomitant]
     Active Substance: PREDNISONE
     Dosage: UNK
     Route: 065
     Dates: start: 2019

REACTIONS (27)
  - Carbon monoxide poisoning [Recovering/Resolving]
  - Dyspnoea [Not Recovered/Not Resolved]
  - Nasal congestion [Unknown]
  - Pain in extremity [Not Recovered/Not Resolved]
  - Condition aggravated [Unknown]
  - Depressed mood [Unknown]
  - Pulmonary thrombosis [Recovering/Resolving]
  - Wheezing [Unknown]
  - Sensitivity to weather change [Not Recovered/Not Resolved]
  - Diarrhoea [Recovering/Resolving]
  - Decreased appetite [Not Recovered/Not Resolved]
  - Feeling hot [Not Recovered/Not Resolved]
  - Therapy cessation [Not Recovered/Not Resolved]
  - Chronic obstructive pulmonary disease [Recovering/Resolving]
  - Visual acuity reduced [Not Recovered/Not Resolved]
  - Pneumonia [Recovering/Resolving]
  - Bone pain [Not Recovered/Not Resolved]
  - Asthenia [Recovering/Resolving]
  - Drug ineffective [Not Recovered/Not Resolved]
  - Sluggishness [Not Recovered/Not Resolved]
  - Vitreous floaters [Not Recovered/Not Resolved]
  - Fatigue [Recovering/Resolving]
  - Insomnia [Unknown]
  - Immune system disorder [Unknown]
  - Heart rate increased [Not Recovered/Not Resolved]
  - Throat irritation [Not Recovered/Not Resolved]
  - Fluid retention [Not Recovered/Not Resolved]

NARRATIVE: CASE EVENT DATE: 2018
